FAERS Safety Report 10242201 (Version 1)
Quarter: 2014Q2

REPORT INFORMATION
  Report Type: Report from Study
  Country: US (occurrence: US)
  Receive Date: 20140617
  Receipt Date: 20140617
  Transmission Date: 20141212
  Serious: Yes (Hospitalization, Other)
  Sender: FDA-Public Use
  Company Number: US-ABBVIE-14P-163-1246463-00

PATIENT
  Sex: Female

DRUGS (10)
  1. HUMIRA [Suspect]
     Indication: CROHN^S DISEASE
     Dates: start: 20140407, end: 20140407
  2. HUMIRA [Suspect]
     Dates: start: 20140421, end: 20140421
  3. HUMIRA [Suspect]
     Dates: start: 20140505, end: 20140505
  4. HUMIRA [Suspect]
     Dates: start: 20140521, end: 20140521
  5. HUMIRA [Suspect]
     Dates: start: 20140528
  6. PENTASA [Concomitant]
     Indication: CROHN^S DISEASE
  7. 6-MP [Concomitant]
     Indication: PRODUCT USED FOR UNKNOWN INDICATION
  8. FOLIC ACID [Concomitant]
     Indication: PRODUCT USED FOR UNKNOWN INDICATION
  9. ALIGN PROBIOTIC [Concomitant]
     Indication: PRODUCT USED FOR UNKNOWN INDICATION
  10. ZYRTEC [Concomitant]
     Indication: HYPERSENSITIVITY

REACTIONS (7)
  - Intestinal stenosis [Recovering/Resolving]
  - Intestinal obstruction [Recovering/Resolving]
  - Abdominal distension [Recovering/Resolving]
  - Abdominal pain [Recovering/Resolving]
  - Vomiting [Recovering/Resolving]
  - Abdominal pain upper [Recovering/Resolving]
  - Condition aggravated [Recovered/Resolved]
